FAERS Safety Report 23790607 (Version 1)
Quarter: 2024Q2

REPORT INFORMATION
  Report Type: Spontaneous
  Country: SI (occurrence: SI)
  Receive Date: 20240427
  Receipt Date: 20240427
  Transmission Date: 20240716
  Serious: Yes (Life-Threatening, Hospitalization)
  Sender: FDA-Public Use
  Company Number: None

PATIENT
  Age: 62 Year
  Sex: Female

DRUGS (16)
  1. CAPECITABINE [Suspect]
     Active Substance: CAPECITABINE
     Indication: Breast cancer metastatic
     Dosage: DOSE: 3 TBL. 2X DAILY?ON 20 MARCH 2024: 1800MG/12H (500 MG AND 150 MG TABLETS)
     Route: 048
     Dates: start: 20240321, end: 20240324
  2. CAPECITABINE [Suspect]
     Active Substance: CAPECITABINE
     Indication: Breast cancer metastatic
     Dosage: TOTAL DOSE (500 MG AND 150 MG TABLETS): 1800MG/12H, TEVA
     Route: 048
     Dates: start: 20240320, end: 20240320
  3. CHOLECALCIFEROL [Concomitant]
     Active Substance: CHOLECALCIFEROL
     Indication: Product used for unknown indication
     Dosage: STRENGHT: 14400 I.E./ML?DOSE: 1X5GTT
     Route: 065
  4. ACETAMINOPHEN [Concomitant]
     Active Substance: ACETAMINOPHEN
     Indication: Product used for unknown indication
     Dosage: TIME INTERVAL: AS NECESSARY
     Route: 065
  5. KISQALI [Concomitant]
     Active Substance: RIBOCICLIB
     Indication: Product used for unknown indication
     Dosage: 3 TBL. 1X WEEKLY FOR 3 WEEKS IN TOTAL, THEN 1 WEEK BREAK
     Route: 065
  6. REGLAN [Concomitant]
     Active Substance: METOCLOPRAMIDE HYDROCHLORIDE
     Indication: Product used for unknown indication
     Route: 065
  7. Spasmex [Concomitant]
     Indication: Product used for unknown indication
     Route: 065
  8. METAMIZOLE SODIUM [Concomitant]
     Active Substance: METAMIZOLE SODIUM
     Indication: Product used for unknown indication
     Dosage: STRENGHT: 500 MG/ML
     Route: 065
  9. Nalgesin [Concomitant]
     Indication: Product used for unknown indication
     Dosage: TIME INTERVAL: AS NECESSARY: FORTE 550 MG
     Route: 065
  10. OLIVE OIL [Concomitant]
     Active Substance: OLIVE OIL
     Indication: Product used for unknown indication
     Dosage: OLIVE OIL 20%
     Route: 061
  11. PROLIA [Concomitant]
     Active Substance: DENOSUMAB
     Indication: Product used for unknown indication
     Dosage: PROLIA 120 MG?PROLIA 1-AMPOULE PER MONTH
     Route: 065
  12. LOPACUT [Concomitant]
     Indication: Product used for unknown indication
     Route: 065
  13. LINOLA UREA [Concomitant]
     Indication: Product used for unknown indication
     Route: 065
  14. FEMARA [Concomitant]
     Active Substance: LETROZOLE
     Indication: Breast cancer metastatic
     Dosage: IN THE MORNING
     Route: 065
     Dates: end: 20240117
  15. KALCIJEV KARBONAT KRKA [Concomitant]
     Indication: Product used for unknown indication
     Dosage: 1X1
     Route: 065
  16. ESOMEPRAZOLE MAGNESIUM [Concomitant]
     Active Substance: ESOMEPRAZOLE MAGNESIUM
     Indication: Product used for unknown indication
     Route: 065

REACTIONS (5)
  - Ileus paralytic [Recovering/Resolving]
  - Palmar-plantar erythrodysaesthesia syndrome [Not Recovered/Not Resolved]
  - Abdominal pain [Recovered/Resolved]
  - Asthenia [Recovering/Resolving]
  - Pyrexia [Recovered/Resolved]

NARRATIVE: CASE EVENT DATE: 20240324
